FAERS Safety Report 6381120-1 (Version None)
Quarter: 2009Q3

REPORT INFORMATION
  Report Type: 
  Country: None (occurrence: None)
  Receive Date: 20090924
  Receipt Date: 20090722
  Transmission Date: 20100115
  Serious: Yes (Hospitalization, Other)
  Sender: FDA-Public Use
  Company Number: 230085J09BRA

PATIENT
  Sex: Female

DRUGS (2)
  1. REBIF [Suspect]
     Indication: MULTIPLE SCLEROSIS
     Dosage: 44 MCG, 2 IN 1 WEEKS
     Dates: start: 20060501, end: 20090707
  2. INSULIN (INSULIN /00030501/) [Concomitant]

REACTIONS (3)
  - LIPOATROPHY [None]
  - MUSCLE ATROPHY [None]
  - RECTOSIGMOID CANCER [None]
